FAERS Safety Report 11154770 (Version 1)
Quarter: 2015Q2

REPORT INFORMATION
  Report Type: Spontaneous
  Country: US (occurrence: None)
  Receive Date: 20150601
  Receipt Date: 20150601
  Transmission Date: 20150821
  Serious: No
  Sender: FDA-Public Use
  Company Number: None

PATIENT
  Age: 82 Year
  Sex: Female
  Weight: 77.11 kg

DRUGS (1)
  1. VALSARTAN (OHMLABS) (ARB) [Suspect]
     Active Substance: VALSARTAN
     Indication: MUSCLE SPASMS
     Dates: start: 20150423, end: 20150503

REACTIONS (5)
  - Dizziness [None]
  - Pain in extremity [None]
  - Bronchitis [None]
  - Fatigue [None]
  - Muscle spasms [None]
